FAERS Safety Report 9712086 (Version 1)
Quarter: 2013Q4

REPORT INFORMATION
  Report Type: Spontaneous
  Country: US (occurrence: US)
  Receive Date: 20131126
  Receipt Date: 20131126
  Transmission Date: 20140711
  Serious: Yes (Other)
  Sender: FDA-Public Use
  Company Number: US-B.I. PHARMACEUTICALS,INC./RIDGEFIELD-2013-BI-38389BP

PATIENT
  Age: 88 Year
  Sex: Male

DRUGS (2)
  1. TRADJENTA [Suspect]
     Indication: TYPE 2 DIABETES MELLITUS
     Dosage: 5 MG
     Route: 048
  2. NOVOLOG [Concomitant]
     Dosage: STRENGTH: 5 UNITS; DAILY DOSE: 5 UNITS
     Route: 058

REACTIONS (2)
  - Pancreatitis acute [Unknown]
  - Abdominal pain [Unknown]
